FAERS Safety Report 5251464-5 (Version None)
Quarter: 2007Q1

REPORT INFORMATION
  Report Type: 
  Country: None (occurrence: None)
  Receive Date: 20070228
  Receipt Date: 20060526
  Transmission Date: 20070707
  Serious: Yes (Hospitalization)
  Sender: FDA-Public Use
  Company Number: US-GLAXOSMITHKLINE-A0605408A

PATIENT
  Age: 58 Year
  Sex: Female
  Weight: 57.7 kg

DRUGS (6)
  1. LAMICTAL [Suspect]
     Indication: BIPOLAR DISORDER
     Dosage: 200MG PER DAY
     Route: 048
     Dates: start: 20041101
  2. DEPAKOTE ER [Concomitant]
     Indication: BIPOLAR DISORDER
     Dosage: 1000MG AT NIGHT
     Route: 048
  3. CLOZAPINE [Concomitant]
     Indication: BIPOLAR DISORDER
     Dosage: 400MG PER DAY
     Route: 048
  4. ROBINUL [Concomitant]
     Indication: DROOLING
     Dosage: 1MG TWICE PER DAY
     Route: 048
  5. LEVOXYL [Concomitant]
     Indication: HYPOTHYROIDISM
     Dosage: 75MCG PER DAY
     Route: 048
  6. COLACE [Concomitant]
     Indication: CONSTIPATION
     Dosage: 100MG TWICE PER DAY
     Route: 048

REACTIONS (1)
  - DELIRIUM [None]
